FAERS Safety Report 10088962 (Version 2)
Quarter: 2014Q2

REPORT INFORMATION
  Report Type: Spontaneous
  Country: JP (occurrence: JP)
  Receive Date: 20140421
  Receipt Date: 20140519
  Transmission Date: 20141212
  Serious: Yes (Hospitalization)
  Sender: FDA-Public Use
  Company Number: PHHY2014JP048066

PATIENT
  Sex: 0

DRUGS (1)
  1. AFINITOR [Suspect]
     Route: 048

REACTIONS (2)
  - Gastric ulcer [Recovered/Resolved]
  - Anaemia [Recovered/Resolved]
